FAERS Safety Report 8859324 (Version 1)
Quarter: 2012Q4

REPORT INFORMATION
  Report Type: 
  Country: US (occurrence: US)
  Receive Date: 20121024
  Receipt Date: 20121024
  Transmission Date: 20130627
  Serious: No
  Sender: FDA-Public Use
  Company Number: US-ASTRAZENECA-2012SE24495

PATIENT
  Age: 57 Year
  Sex: Female
  Weight: 63.5 kg

DRUGS (3)
  1. METOPROLOL SUCCINATE [Suspect]
     Route: 048
     Dates: start: 20120127
  2. CLARITEN OTC [Concomitant]
  3. HYDROCHLOROTHIAZIDE [Concomitant]

REACTIONS (6)
  - Pruritus [Unknown]
  - Paranoia [Unknown]
  - Adverse event [Unknown]
  - Fear [Unknown]
  - Heart rate irregular [Unknown]
  - Palpitations [Not Recovered/Not Resolved]
